FAERS Safety Report 5347243-0 (Version None)
Quarter: 2007Q2

REPORT INFORMATION
  Report Type: 
  Country: None (occurrence: None)
  Receive Date: 20070606
  Receipt Date: 20070529
  Transmission Date: 20071010
  Serious: Yes (Hospitalization)
  Sender: FDA-Public Use
  Company Number: PHRM2007FR01562

PATIENT
  Age: 92 Year
  Sex: Female
  Weight: 42 kg

DRUGS (16)
  1. VOLTAREN [Suspect]
     Indication: MUSCLE STRAIN
     Route: 061
     Dates: start: 20070326, end: 20070401
  2. STABLON [Suspect]
     Route: 048
     Dates: end: 20070221
  3. XALATAN [Suspect]
  4. COSOPT [Suspect]
  5. DIFFU K [Suspect]
     Route: 048
  6. LORAZEPAM [Suspect]
     Route: 048
  7. PARIET [Suspect]
     Route: 048
  8. CACIT D3 [Suspect]
     Route: 048
     Dates: end: 20070401
  9. DAFALGAN [Suspect]
     Dates: end: 20070401
  10. QUOTANE [Suspect]
     Route: 061
  11. DEDROGYL [Suspect]
     Route: 048
     Dates: end: 20070221
  12. CORTANCYL [Suspect]
     Route: 048
     Dates: start: 20040101
  13. INDAPAMIDE [Suspect]
     Route: 048
     Dates: end: 20070401
  14. MOTILIUM [Suspect]
     Route: 048
     Dates: end: 20070401
  15. PREVISCAN [Suspect]
     Route: 048
     Dates: start: 20040101
  16. AUGMENTIN /SCH/ [Suspect]
     Route: 048
     Dates: start: 20070329, end: 20070401

REACTIONS (7)
  - HYPOKALAEMIA [None]
  - HYPONATRAEMIA [None]
  - IRON DEFICIENCY ANAEMIA [None]
  - RASH ERYTHEMATOUS [None]
  - RASH MACULAR [None]
  - RASH PAPULAR [None]
  - VASCULAR PURPURA [None]
